FAERS Safety Report 7411825-2 (Version None)
Quarter: 2011Q2

REPORT INFORMATION
  Report Type: 
  Country: None (occurrence: None)
  Receive Date: 20110413
  Receipt Date: 20110331
  Transmission Date: 20111010
  Serious: Yes (Other)
  Sender: FDA-Public Use
  Company Number: US-ELI_LILLY_AND_COMPANY-US201004004651

PATIENT
  Sex: Female

DRUGS (11)
  1. FORTEO [Suspect]
     Indication: OSTEOPOROSIS
     Dosage: 20 UG, DAILY (1/D)
     Dates: start: 20100405
  2. FORTEO [Suspect]
     Dosage: 20 UG, QD
  3. OCUPRESS [Concomitant]
  4. CALCIUM [Concomitant]
  5. SPIRIVA [Concomitant]
  6. ADVAIR DISKUS 100/50 [Concomitant]
  7. FORTEO [Suspect]
     Dosage: 20 UG, DAILY (1/D)
  8. CLARITIN [Concomitant]
  9. DIOVAN [Concomitant]
  10. TRIAMTERENE [Concomitant]
  11. VITAMIN D [Concomitant]

REACTIONS (6)
  - HERPES ZOSTER [None]
  - HEADACHE [None]
  - NASOPHARYNGITIS [None]
  - EXPIRED DRUG ADMINISTERED [None]
  - LUNG NEOPLASM MALIGNANT [None]
  - CONTUSION [None]
